FAERS Safety Report 10383078 (Version 1)
Quarter: 2014Q3

REPORT INFORMATION
  Report Type: Spontaneous
  Country: US (occurrence: US)
  Receive Date: 20140813
  Receipt Date: 20140813
  Transmission Date: 20150326
  Serious: No
  Sender: FDA-Public Use
  Company Number: -SAAVPROD-FABR-1003381

PATIENT
  Age: 55 Year
  Sex: Male
  Weight: 78.01 kg

DRUGS (3)
  1. AGALSIDASE BETA [Suspect]
     Active Substance: AGALSIDASE BETA
     Indication: FABRY^S DISEASE
     Dosage: 80 MG, Q2W
     Route: 042
     Dates: start: 20030804
  2. AGALSIDASE BETA [Suspect]
     Active Substance: AGALSIDASE BETA
     Indication: FABRY^S DISEASE
     Dosage: 80 MG, Q2W
     Route: 042
     Dates: start: 20120628
  3. AGALSIDASE ALFA [Concomitant]
     Active Substance: AGALSIDASE ALFA
     Indication: PRODUCT USED FOR UNKNOWN INDICATION
     Dosage: UNK
     Route: 065

REACTIONS (1)
  - Nerve injury [Not Recovered/Not Resolved]
